FAERS Safety Report 5135564-6 (Version None)
Quarter: 2006Q4

REPORT INFORMATION
  Report Type: 
  Country: None (occurrence: None)
  Receive Date: 20061020
  Receipt Date: 20061009
  Transmission Date: 20070319
  Serious: Yes (Other)
  Sender: FDA-Public Use
  Company Number: 2006125101

PATIENT
  Sex: Female
  Weight: 68.0396 kg

DRUGS (1)
  1. LIPITOR [Suspect]
     Indication: BLOOD CHOLESTEROL INCREASED
     Dosage: 20 MG (20 MG, 1 IN 1 D) 3-4 YRS AGO

REACTIONS (4)
  - BACK PAIN [None]
  - BREAST CANCER FEMALE [None]
  - HYPERTHYROIDISM [None]
  - HYPERTONIC BLADDER [None]
